FAERS Safety Report 19208392 (Version 8)
Quarter: 2021Q3

REPORT INFORMATION
  Report Type: Report from Study
  Country: JP (occurrence: JP)
  Receive Date: 20210504
  Receipt Date: 20210813
  Transmission Date: 20211014
  Serious: Yes (Hospitalization)
  Sender: FDA-Public Use
  Company Number: JP-ROCHE-2788896

PATIENT
  Age: 67 Year
  Sex: Male
  Weight: 71.6 kg

DRUGS (10)
  1. MAGNESIUM OXIDE. [Concomitant]
     Active Substance: MAGNESIUM OXIDE
     Indication: CONSTIPATION
     Dates: start: 20210222
  2. CORTROSYN [Concomitant]
     Active Substance: COSYNTROPIN
     Dates: start: 20210501, end: 20210501
  3. ATEZOLIZUMAB. [Suspect]
     Active Substance: ATEZOLIZUMAB
     Indication: HEPATOCELLULAR CARCINOMA
     Dosage: ON 01/FEB/2021 AND 13/APR/2021, RECEIVED MOST RECENT DOSE (1200 MG) OF STUDY DRUG PRIOR TO AE AND SA
     Route: 041
     Dates: start: 20210114
  4. LHRH [Concomitant]
     Active Substance: GONADORELIN DIACETATE TETRAHYDRATE
     Dates: start: 20210428, end: 20210428
  5. PFIZER?BIONTECH COVID?19 VACCINE [Concomitant]
     Active Substance: TOZINAMERAN
     Indication: PROPHYLAXIS
     Dates: start: 20210630, end: 20210630
  6. HCRH TANABE [Concomitant]
     Dates: start: 20210428, end: 20210428
  7. BEVACIZUMAB. [Suspect]
     Active Substance: BEVACIZUMAB
     Indication: HEPATOCELLULAR CARCINOMA
     Dosage: ON 01/FEB/2021 AND 13/FEB/2021, RECEIVED MOST RECENT DOSE (1129.5 MG) PRIOR TO AE AND SAE.
     Route: 042
     Dates: start: 20210114
  8. TRH [Concomitant]
     Dates: start: 20210428, end: 20210428
  9. AMLODIPINE [Concomitant]
     Active Substance: AMLODIPINE BESYLATE
     Indication: HYPERTENSION
  10. PITAVASTATIN CALCIUM [Concomitant]
     Active Substance: PITAVASTATIN CALCIUM
     Indication: DYSLIPIDAEMIA

REACTIONS (2)
  - Thyroiditis [Recovered/Resolved]
  - Hypopituitarism [Not Recovered/Not Resolved]

NARRATIVE: CASE EVENT DATE: 20210201
